FAERS Safety Report 14494795 (Version 1)
Quarter: 2018Q1

REPORT INFORMATION
  Report Type: Spontaneous
  Country: EG (occurrence: EG)
  Receive Date: 20180206
  Receipt Date: 20180206
  Transmission Date: 20180509
  Serious: Yes (Hospitalization, Other)
  Sender: FDA-Public Use
  Company Number: EG-MYLANLABS-2018M1007304

PATIENT
  Age: 16 Year
  Sex: Male

DRUGS (2)
  1. ISOTRETINOIN. [Suspect]
     Active Substance: ISOTRETINOIN
     Dosage: 80MG PER DAY (1.5MG/KG)
     Route: 048
  2. ISOTRETINOIN. [Suspect]
     Active Substance: ISOTRETINOIN
     Indication: ACNE
     Dosage: 30MG PER DAY (0.6MG/KG)
     Route: 048

REACTIONS (3)
  - Sacroiliitis [Recovered/Resolved]
  - Acne fulminans [Recovered/Resolved]
  - Synovitis [Recovered/Resolved]
